FAERS Safety Report 14822180 (Version 2)
Quarter: 2019Q2

REPORT INFORMATION
  Report Type: Report from Study
  Country: US (occurrence: US)
  Receive Date: 20180427
  Receipt Date: 20190613
  Transmission Date: 20190711
  Serious: Yes (Hospitalization, Other)
  Sender: FDA-Public Use
  Company Number: US-AMGEN-USASL2018055712

PATIENT
  Age: 60 Year
  Sex: Female
  Weight: 63.5 kg

DRUGS (10)
  1. XELJANZ XR [Suspect]
     Active Substance: TOFACITINIB CITRATE
     Indication: RHEUMATOID ARTHRITIS
     Dosage: 11 MILLIGRAM, QD
     Route: 048
     Dates: start: 201805, end: 2018
  2. PLAQUENIL [Concomitant]
     Active Substance: HYDROXYCHLOROQUINE SULFATE
     Dosage: UNK, QD, ONE PILL IN A DAY
     Route: 048
     Dates: end: 2018
  3. AMLODIPINE [Concomitant]
     Active Substance: AMLODIPINE BESYLATE
     Indication: RAYNAUD^S PHENOMENON
     Dosage: 5 MILLIGRAM, QD
     Dates: start: 2014
  4. XELJANZ XR [Suspect]
     Active Substance: TOFACITINIB CITRATE
     Dosage: 11 MILLIGRAM, QD
     Route: 048
     Dates: end: 201903
  5. METHOTREXATE. [Suspect]
     Active Substance: METHOTREXATE
     Dosage: UNK, SEVERAL TABLETS TAKEN
     Route: 065
     Dates: end: 201804
  6. ENBREL [Suspect]
     Active Substance: ETANERCEPT
     Indication: RHEUMATOID ARTHRITIS
     Dosage: 50 MG, QWK
     Route: 065
     Dates: start: 2016, end: 20180420
  7. XELJANZ XR [Suspect]
     Active Substance: TOFACITINIB CITRATE
     Dosage: 11 MILLIGRAM, QD
     Route: 048
     Dates: start: 2018, end: 2018
  8. XELJANZ XR [Suspect]
     Active Substance: TOFACITINIB CITRATE
     Dosage: 11 MILLIGRAM, QD
     Route: 048
     Dates: start: 2019
  9. METHOTREXATE. [Suspect]
     Active Substance: METHOTREXATE
     Indication: RHEUMATOID ARTHRITIS
     Dosage: UNK UNK, QWK
     Route: 065
     Dates: start: 2015
  10. PLAQUENIL [Concomitant]
     Active Substance: HYDROXYCHLOROQUINE SULFATE
     Indication: RHEUMATOID ARTHRITIS
     Dosage: UNK UNK, BID, 2 PILLS A DAY
     Route: 048
     Dates: start: 2015

REACTIONS (14)
  - Tibia fracture [Recovered/Resolved]
  - Joint injury [Recovered/Resolved]
  - Malaise [Unknown]
  - Rheumatoid arthritis [Unknown]
  - Peripheral swelling [Recovered/Resolved]
  - Foot fracture [Recovered/Resolved]
  - Carpal tunnel decompression [Unknown]
  - Road traffic accident [Unknown]
  - Nerve injury [Recovered/Resolved]
  - Lower limb fracture [Recovered/Resolved]
  - Herpes zoster [Recovered/Resolved]
  - Sinusitis [Unknown]
  - Cystitis [Unknown]
  - Ear infection [Unknown]

NARRATIVE: CASE EVENT DATE: 201802
